FAERS Safety Report 8802290 (Version 1)
Quarter: 2012Q4

REPORT INFORMATION
  Report Type: 
  Country: ZA (occurrence: ZA)
  Receive Date: 20120921
  Receipt Date: 20120921
  Transmission Date: 20130627
  Serious: Yes (Death, Hospitalization, Other)
  Sender: FDA-Public Use
  Company Number: PHHY2011ZA117200

PATIENT
  Sex: Male

DRUGS (1)
  1. GLIVEC [Suspect]
     Dates: start: 20071001

REACTIONS (4)
  - Death [Fatal]
  - Cerebral haemorrhage [Unknown]
  - Chronic myeloid leukaemia [Unknown]
  - Drug ineffective [Unknown]
